FAERS Safety Report 8487573-7 (Version None)
Quarter: 2012Q3

REPORT INFORMATION
  Report Type: 
  Country: None (occurrence: None)
  Receive Date: 20120705
  Receipt Date: 20120621
  Transmission Date: 20120928
  Serious: No
  Sender: FDA-Public Use
  Company Number: US-JNJFOC-20120612162

PATIENT
  Sex: Female
  Weight: 72.58 kg

DRUGS (6)
  1. CELEBREX [Concomitant]
     Indication: ARTHRITIS
     Route: 048
  2. FENTANYL-100 [Suspect]
     Indication: BACK DISORDER
     Route: 062
     Dates: start: 20090101
  3. LIPITOR [Concomitant]
     Indication: HYPERTENSION
     Route: 048
     Dates: start: 20080101
  4. WARFARIN SODIUM [Concomitant]
     Indication: ANTICOAGULANT THERAPY
     Route: 048
     Dates: start: 19970101
  5. FENTANYL-100 [Suspect]
     Route: 062
     Dates: start: 20090101, end: 20090101
  6. LISINOPRIL [Concomitant]
     Indication: HYPERTENSION
     Route: 048
     Dates: start: 20080101

REACTIONS (3)
  - PRODUCT QUALITY ISSUE [None]
  - DRUG INEFFECTIVE [None]
  - WRONG TECHNIQUE IN DRUG USAGE PROCESS [None]
